FAERS Safety Report 25029354 (Version 1)
Quarter: 2025Q1

REPORT INFORMATION
  Report Type: Spontaneous
  Country: US (occurrence: US)
  Receive Date: 20250303
  Receipt Date: 20250303
  Transmission Date: 20250408
  Serious: No
  Sender: APOTEX
  Company Number: US-APOTEX-2025AP002517

PATIENT
  Age: 33 Year
  Sex: Female

DRUGS (2)
  1. GEMFIBROZIL [Suspect]
     Active Substance: GEMFIBROZIL
     Indication: Pancreatitis
     Dosage: 600 MILLIGRAM, BID
     Route: 048
  2. NIACIN [Concomitant]
     Active Substance: NIACIN
     Indication: Pancreatitis
     Dosage: 250 MILLIGRAM, QD
     Route: 048

REACTIONS (1)
  - Therapy cessation [Unknown]
